FAERS Safety Report 21026532 (Version 1)
Quarter: 2022Q2

REPORT INFORMATION
  Report Type: Spontaneous
  Country: US (occurrence: US)
  Receive Date: 20220630
  Receipt Date: 20220630
  Transmission Date: 20220721
  Serious: Yes (Hospitalization)
  Sender: FDA-Public Use
  Company Number: US-MYLANLABS-2022M1049108

PATIENT
  Age: 73 Year
  Sex: Male

DRUGS (10)
  1. METOPROLOL [Suspect]
     Active Substance: METOPROLOL
     Indication: Ventricular tachycardia
     Dosage: UNK
     Route: 065
  2. AMIODARONE [Suspect]
     Active Substance: AMIODARONE
     Indication: Ventricular tachycardia
     Dosage: UNK
     Route: 065
  3. EPINEPHRINE [Suspect]
     Active Substance: EPINEPHRINE
     Indication: Ventricular tachycardia
     Dosage: 30 ML OF 0.5% BUPIVACAINE WITH EPINEPHRINE (RATIO, 1:200,000) WAS INJECTED INTO THE SPACE
     Route: 065
  4. EPINEPHRINE [Suspect]
     Active Substance: EPINEPHRINE
     Indication: Ventricular tachycardia
     Dosage: A 15-ML BOLUS OF 0.25% BUPIVACAINE WITH EPINEPHRINE (RATIO, 1:200,000) WAS INJECTED
     Route: 040
  5. BUPIVACAINE [Suspect]
     Active Substance: BUPIVACAINE
     Indication: Ventricular tachycardia
     Dosage: 30 ML OF 0.5% BUPIVACAINE WITH EPINEPHRINE (RATIO, 1:200,000) WAS INJECTED INTO THE SPACE
     Route: 065
  6. BUPIVACAINE [Suspect]
     Active Substance: BUPIVACAINE
     Indication: Ventricular tachycardia
     Dosage: 2 MILLILITER, QH (A CONTINUOUS INFUSION OF 0.1% BUPIVACAINE WAS INITIATED AT A RATE OF 2 ML/HR)
     Route: 042
  7. BUPIVACAINE [Suspect]
     Active Substance: BUPIVACAINE
     Indication: Ventricular tachycardia
     Dosage: A 15-ML BOLUS OF 0.25% BUPIVACAINE WITH EPINEPHRINE (RATIO, 1:200,000) WAS INJECTED
     Route: 040
  8. BUPIVACAINE [Suspect]
     Active Substance: BUPIVACAINE
     Indication: Ventricular tachycardia
     Dosage: 6 MILLILITER, QH (0.125% BUPIVACAINE AT A RATE OF 6 ML/HR) (INFUSION)
     Route: 042
  9. WARFARIN [Concomitant]
     Active Substance: WARFARIN
     Indication: Anticoagulant therapy
     Dosage: 3 MILLIGRAM, QD
     Route: 065
  10. HEPARIN [Concomitant]
     Active Substance: HEPARIN SODIUM
     Indication: Anticoagulant therapy
     Dosage: HEPARIN DRIP
     Route: 041

REACTIONS (1)
  - Drug ineffective [Unknown]
